FAERS Safety Report 19003061 (Version 6)
Quarter: 2022Q1

REPORT INFORMATION
  Report Type: Report from Study
  Country: JP (occurrence: JP)
  Receive Date: 20210312
  Receipt Date: 20220331
  Transmission Date: 20220423
  Serious: Yes (Hospitalization)
  Sender: FDA-Public Use
  Company Number: JP-JNJFOC-A-CH2019-194043

PATIENT
  Age: 5 Year
  Sex: Female

DRUGS (54)
  1. OPSUMIT [Suspect]
     Active Substance: MACITENTAN
     Indication: Pulmonary arterial hypertension
     Dosage: 3 MG, IN THE EVENING
     Route: 048
     Dates: start: 20170321, end: 20180912
  2. OPSUMIT [Suspect]
     Active Substance: MACITENTAN
     Indication: Pulmonary arterial hypertension
     Dosage: 1.5 MG, IN THE EVENING
     Route: 048
     Dates: start: 20170221, end: 20170320
  3. OPSUMIT [Suspect]
     Active Substance: MACITENTAN
     Dosage: 3.2 MG, IN THE EVENING
     Route: 048
     Dates: start: 20180913, end: 20181015
  4. OPSUMIT [Suspect]
     Active Substance: MACITENTAN
     Dosage: 3.4 MG, IN THE EVENING
     Route: 048
     Dates: start: 20181016
  5. OPSUMIT [Suspect]
     Active Substance: MACITENTAN
     Route: 048
     Dates: start: 20180914
  6. UPTRAVI [Suspect]
     Active Substance: SELEXIPAG
     Indication: Pulmonary arterial hypertension
     Dosage: 0.06-0.12MG
     Route: 048
     Dates: start: 20180116
  7. UPTRAVI [Suspect]
     Active Substance: SELEXIPAG
     Dosage: 0.12 - 0.544MG
     Route: 048
  8. UPTRAVI [Suspect]
     Active Substance: SELEXIPAG
     Route: 048
  9. ENALAPRIL MALEATE [Concomitant]
     Active Substance: ENALAPRIL MALEATE
     Indication: Pulmonary arterial hypertension
     Route: 048
     Dates: start: 20170124, end: 20180913
  10. ENALAPRIL MALEATE [Concomitant]
     Active Substance: ENALAPRIL MALEATE
     Dosage: 1.5-1.7MG
     Route: 048
  11. ENALAPRIL MALEATE [Concomitant]
     Active Substance: ENALAPRIL MALEATE
     Route: 048
     Dates: start: 20190329
  12. ENALAPRIL MALEATE [Concomitant]
     Active Substance: ENALAPRIL MALEATE
     Route: 048
     Dates: start: 20190401, end: 20191208
  13. ENALAPRIL MALEATE [Concomitant]
     Active Substance: ENALAPRIL MALEATE
     Route: 048
     Dates: start: 20191213
  14. ENALAPRIL MALEATE [Concomitant]
     Active Substance: ENALAPRIL MALEATE
     Route: 048
     Dates: start: 20180914
  15. ADCIRCA [Concomitant]
     Active Substance: TADALAFIL
     Indication: Pulmonary arterial hypertension
     Route: 048
     Dates: start: 20170124, end: 20180913
  16. ADCIRCA [Concomitant]
     Active Substance: TADALAFIL
     Indication: Pulmonary arterial hypertension
     Dosage: 15-17MG
     Route: 048
  17. ADCIRCA [Concomitant]
     Active Substance: TADALAFIL
     Route: 048
     Dates: start: 20170124
  18. ADCIRCA [Concomitant]
     Active Substance: TADALAFIL
     Route: 048
     Dates: start: 20180914
  19. BERAPROST SODIUM [Concomitant]
     Active Substance: BERAPROST SODIUM
     Indication: Pulmonary arterial hypertension
     Route: 048
     Dates: start: 20161222, end: 20171227
  20. FUROSEMIDE [Concomitant]
     Active Substance: FUROSEMIDE
     Indication: Pulmonary arterial hypertension
     Route: 048
     Dates: start: 20170124, end: 20180912
  21. FUROSEMIDE [Concomitant]
     Active Substance: FUROSEMIDE
     Indication: Cardiac failure
     Dosage: 11.5-12.5MG
     Route: 048
  22. FUROSEMIDE [Concomitant]
     Active Substance: FUROSEMIDE
     Route: 048
     Dates: start: 20190329
  23. FUROSEMIDE [Concomitant]
     Active Substance: FUROSEMIDE
     Route: 048
     Dates: start: 20190331, end: 20191208
  24. FUROSEMIDE [Concomitant]
     Active Substance: FUROSEMIDE
     Route: 048
     Dates: start: 20191213
  25. FUROSEMIDE [Concomitant]
     Active Substance: FUROSEMIDE
     Route: 042
     Dates: start: 20191212, end: 20191212
  26. FUROSEMIDE [Concomitant]
     Active Substance: FUROSEMIDE
     Route: 048
     Dates: start: 20161222, end: 20180913
  27. FUROSEMIDE [Concomitant]
     Active Substance: FUROSEMIDE
     Route: 048
     Dates: start: 20180914
  28. SPIRONOLACTONE [Concomitant]
     Active Substance: SPIRONOLACTONE
     Indication: Pulmonary arterial hypertension
     Route: 048
     Dates: start: 20170124
  29. SPIRONOLACTONE [Concomitant]
     Active Substance: SPIRONOLACTONE
     Dosage: 11.5-12.5MG
     Route: 048
  30. SPIRONOLACTONE [Concomitant]
     Active Substance: SPIRONOLACTONE
     Route: 048
     Dates: start: 20190329
  31. SPIRONOLACTONE [Concomitant]
     Active Substance: SPIRONOLACTONE
     Route: 048
     Dates: start: 20190331, end: 20191208
  32. SPIRONOLACTONE [Concomitant]
     Active Substance: SPIRONOLACTONE
     Route: 048
     Dates: start: 20191213
  33. SPIRONOLACTONE [Concomitant]
     Active Substance: SPIRONOLACTONE
     Route: 048
     Dates: start: 20161222, end: 20180913
  34. SPIRONOLACTONE [Concomitant]
     Active Substance: SPIRONOLACTONE
     Route: 048
     Dates: start: 20180914
  35. WARFARIN POTASSIUM [Concomitant]
     Active Substance: WARFARIN POTASSIUM
     Indication: Pulmonary arterial hypertension
     Route: 048
     Dates: start: 20161122, end: 20180913
  36. WARFARIN POTASSIUM [Concomitant]
     Active Substance: WARFARIN POTASSIUM
     Dosage: 1.4-1.6MG
     Route: 048
  37. WARFARIN POTASSIUM [Concomitant]
     Active Substance: WARFARIN POTASSIUM
     Route: 048
     Dates: start: 20190330
  38. WARFARIN POTASSIUM [Concomitant]
     Active Substance: WARFARIN POTASSIUM
     Dosage: 1.6-1.7MG
     Route: 048
     Dates: start: 20190401
  39. WARFARIN POTASSIUM [Concomitant]
     Active Substance: WARFARIN POTASSIUM
     Route: 048
     Dates: start: 20180914
  40. DIGOXIN [Concomitant]
     Active Substance: DIGOXIN
     Indication: Pulmonary arterial hypertension
     Route: 048
     Dates: start: 20160303, end: 20180913
  41. DIGOXIN [Concomitant]
     Active Substance: DIGOXIN
     Dosage: 0.05-0.0595MG
     Route: 048
  42. DIGOXIN [Concomitant]
     Active Substance: DIGOXIN
     Route: 048
     Dates: start: 20191208
  43. DIGOXIN [Concomitant]
     Active Substance: DIGOXIN
     Route: 048
     Dates: start: 20191213
  44. DIGOXIN [Concomitant]
     Active Substance: DIGOXIN
     Route: 048
     Dates: start: 20180914
  45. CARVEDILOL [Concomitant]
     Active Substance: CARVEDILOL
     Indication: Pulmonary arterial hypertension
     Route: 048
     Dates: start: 20161222, end: 20180913
  46. CARVEDILOL [Concomitant]
     Active Substance: CARVEDILOL
     Dosage: 2.25-3.4MG
     Route: 048
     Dates: start: 20161222
  47. CARVEDILOL [Concomitant]
     Active Substance: CARVEDILOL
     Route: 048
     Dates: start: 20161222
  48. CARVEDILOL [Concomitant]
     Active Substance: CARVEDILOL
     Route: 048
     Dates: start: 20180914
  49. HEPARIN [Concomitant]
     Active Substance: HEPARIN SODIUM
     Indication: Pulmonary arterial hypertension
     Dosage: 72.7-6109.1UNIT,SUSTAIN
     Route: 042
     Dates: start: 20191210, end: 20191218
  50. OXYGEN [Concomitant]
     Active Substance: OXYGEN
     Indication: Influenza
     Route: 055
     Dates: start: 20191209, end: 20191216
  51. DORMICUM [NITRAZEPAM] [Concomitant]
     Indication: Catheterisation cardiac
     Route: 065
     Dates: start: 20190104, end: 20190104
  52. FENTANYL [Concomitant]
     Active Substance: FENTANYL
     Indication: Catheterisation cardiac
     Route: 065
     Dates: start: 20190104, end: 20190104
  53. ULTIVA [Concomitant]
     Active Substance: REMIFENTANIL HYDROCHLORIDE
     Indication: Catheterisation cardiac
     Route: 065
     Dates: start: 20190104, end: 20190104
  54. ROCURONIUM BROMIDE [Concomitant]
     Active Substance: ROCURONIUM BROMIDE
     Indication: Catheterisation cardiac
     Route: 065
     Dates: start: 20190104, end: 20190104

REACTIONS (14)
  - Influenza [Recovering/Resolving]
  - Pneumonia [Recovering/Resolving]
  - Melaena [Recovered/Resolved]
  - Gastroenteritis [Recovering/Resolving]
  - Pyrexia [Recovering/Resolving]
  - Anaemia [Recovering/Resolving]
  - Platelet count decreased [Recovering/Resolving]
  - White blood cell count decreased [Recovered/Resolved]
  - Off label use [Unknown]
  - Hypotension [Unknown]
  - Product use issue [Unknown]
  - Upper respiratory tract inflammation [Recovering/Resolving]
  - Abdominal pain [Recovered/Resolved]
  - Hypotension [Recovering/Resolving]

NARRATIVE: CASE EVENT DATE: 20170221
